FAERS Safety Report 10181790 (Version 1)
Quarter: 2014Q2

REPORT INFORMATION
  Report Type: Spontaneous
  Country: US (occurrence: US)
  Receive Date: 20140519
  Receipt Date: 20140519
  Transmission Date: 20141212
  Serious: No
  Sender: FDA-Public Use
  Company Number: US-PFIZER INC-2014136286

PATIENT
  Age: 52 Year
  Sex: Female
  Weight: 81.63 kg

DRUGS (3)
  1. LYRICA [Suspect]
     Indication: FIBROMYALGIA
     Dosage: UNK
  2. XANAX [Concomitant]
     Indication: DEPRESSION
     Dosage: UNK, DAILY
  3. BUSPAR [Concomitant]
     Indication: DEPRESSION
     Dosage: UNK, 2X/DAY

REACTIONS (1)
  - Drug ineffective [Unknown]
